FAERS Safety Report 18598388 (Version 4)
Quarter: 2021Q3

REPORT INFORMATION
  Report Type: Other
  Country: CA (occurrence: CA)
  Receive Date: 20201210
  Receipt Date: 20210803
  Transmission Date: 20211014
  Serious: Yes (Death, Other)
  Sender: FDA-Public Use
  Company Number: CA-CELLTRION INC.-2020CA033282

PATIENT

DRUGS (16)
  1. METHYLPREDNISOLONE. [Concomitant]
     Active Substance: METHYLPREDNISOLONE
     Indication: PREMEDICATION
     Dosage: 100 MILLIGRAM
     Route: 042
  2. ACTEMRA [Suspect]
     Active Substance: TOCILIZUMAB
     Indication: RHEUMATOID ARTHRITIS
     Dosage: 1000.0 MILLIGRAM
     Route: 042
  3. ACTEMRA [Suspect]
     Active Substance: TOCILIZUMAB
     Indication: RHEUMATOID ARTHRITIS
     Dosage: 792.0 MILLIGRAM 1 EVERY 4 WEEKS
     Route: 042
  4. CALCIUM [Concomitant]
     Active Substance: CALCIUM
     Indication: PRODUCT USED FOR UNKNOWN INDICATION
  5. METHOTREXATE. [Concomitant]
     Active Substance: METHOTREXATE
     Indication: PRODUCT USED FOR UNKNOWN INDICATION
     Route: 048
  6. DESOXIMETASONE. [Concomitant]
     Active Substance: DESOXIMETASONE
  7. FOLIC ACID. [Concomitant]
     Active Substance: FOLIC ACID
     Indication: PRODUCT USED FOR UNKNOWN INDICATION
  8. LASIX [Concomitant]
     Active Substance: FUROSEMIDE
     Indication: PRODUCT USED FOR UNKNOWN INDICATION
  9. DIPHENHYDRAMINE HYDROCHLORIDE. [Concomitant]
     Active Substance: DIPHENHYDRAMINE HYDROCHLORIDE
     Indication: PREMEDICATION
     Dosage: 50 MILLIGRAM
     Route: 048
  10. PREDNISONE. [Concomitant]
     Active Substance: PREDNISONE
     Indication: PRODUCT USED FOR UNKNOWN INDICATION
  11. RITUXIMAB (UNKNOWN) [Suspect]
     Active Substance: RITUXIMAB
     Dosage: UNK
     Route: 042
  12. ACTEMRA [Suspect]
     Active Substance: TOCILIZUMAB
     Dosage: 800.0 MILLIGRAM, 1 EVERY 4 WEEKS
     Route: 042
  13. ACTEMRA [Suspect]
     Active Substance: TOCILIZUMAB
     Dosage: UNK, 1 EVERY 4 WEEKS
     Route: 042
  14. RITUXIMAB (UNKNOWN) [Suspect]
     Active Substance: RITUXIMAB
     Indication: RHEUMATOID ARTHRITIS
     Dosage: 1000.0 MILLIGRAM, 1 EVERY 2 WEEKS
     Route: 042
  15. ACETAMINOPHEN. [Concomitant]
     Active Substance: ACETAMINOPHEN
     Indication: PREMEDICATION
     Dosage: 650.0 MILLIGRAM
     Route: 048
  16. RAMIPRIL. [Concomitant]
     Active Substance: RAMIPRIL
     Indication: BLOOD PRESSURE MEASUREMENT

REACTIONS (28)
  - Blood pressure systolic increased [Fatal]
  - Dyspnoea exertional [Fatal]
  - Tooth fracture [Fatal]
  - Death [Fatal]
  - Blood pressure increased [Fatal]
  - Bronchitis [Fatal]
  - Peripheral swelling [Fatal]
  - Pulmonary fibrosis [Fatal]
  - Rheumatoid arthritis [Fatal]
  - Weight increased [Fatal]
  - Pulmonary embolism [Fatal]
  - Gastroenteritis [Fatal]
  - Oxygen saturation decreased [Fatal]
  - Decreased appetite [Fatal]
  - Headache [Fatal]
  - Nasopharyngitis [Fatal]
  - Asthenia [Fatal]
  - Arthralgia [Fatal]
  - Drug ineffective [Fatal]
  - Poor quality sleep [Fatal]
  - Infusion related reaction [Fatal]
  - Nausea [Fatal]
  - Tooth abscess [Fatal]
  - Hypotension [Fatal]
  - Swelling [Fatal]
  - Oedema peripheral [Fatal]
  - Oedema [Fatal]
  - Diarrhoea [Fatal]
